FAERS Safety Report 4607420-0 (Version None)
Quarter: 2005Q1

REPORT INFORMATION
  Report Type: 
  Country: None (occurrence: None)
  Receive Date: 20050310
  Receipt Date: 20050225
  Transmission Date: 20050727
  Serious: Yes (Hospitalization)
  Sender: FDA-Public Use
  Company Number: 2005015249

PATIENT
  Age: 11 Year
  Sex: Female
  Weight: 29 kg

DRUGS (5)
  1. GENOTROPIN [Suspect]
     Indication: HYPOPITUITARISM
     Dosage: 1 MG, 5 TIMES WEEKLY, SUBCUTANEOUS
     Route: 058
     Dates: start: 20040702
  2. LEUPRORELIN ACETATE (LEUPRORELIN ACETATE) [Suspect]
     Indication: PRECOCIOUS PUBERTY
     Dosage: 1.88 MG, MONTHLY, INTRACARDIAC
     Route: 016
     Dates: start: 20040702
  3. LEVOTHYROXINE SODIUM [Concomitant]
  4. CARBAMAZEPINE [Concomitant]
  5. ZONISAMIDE (ZONISAMIDE) [Concomitant]

REACTIONS (4)
  - HYPOTHYROIDISM [None]
  - LENTIGO [None]
  - MALIGNANT MELANOMA [None]
  - NAEVUS CELL NAEVUS [None]
